FAERS Safety Report 4411256-3 (Version None)
Quarter: 2004Q3

REPORT INFORMATION
  Report Type: 
  Country: None (occurrence: None)
  Receive Date: 20040727
  Receipt Date: 20040715
  Transmission Date: 20050211
  Serious: No
  Sender: FDA-Public Use
  Company Number: 04H-044-0267500-00

PATIENT
  Age: 54 Year
  Sex: Female

DRUGS (2)
  1. BUPIVACAINE HCL INJECTION (BUPIVACAINE HYDROCHLORIDE) (BUPIVACAINE HYD [Suspect]
     Indication: EPIDURAL ANAESTHESIA
     Dosage: 1 MILLIGRAM/MILLILITERS EPIDURAL INFUSION
     Route: 008
  2. SUFENTANIL [Suspect]
     Indication: EPIDURAL ANAESTHESIA
     Dosage: 2 UG/ML EPIDURAL BOLUS
     Route: 008

REACTIONS (3)
  - COMA [None]
  - POST PROCEDURAL COMPLICATION [None]
  - RESPIRATORY DEPRESSION [None]
